FAERS Safety Report 17441879 (Version 2)
Quarter: 2020Q1

REPORT INFORMATION
  Report Type: Spontaneous
  Country: FR (occurrence: FR)
  Receive Date: 20200220
  Receipt Date: 20200306
  Transmission Date: 20200409
  Serious: Yes (Other)
  Sender: FDA-Public Use
  Company Number: FR-BAUSCH-BL-2020-004965

PATIENT
  Age: 90 Year
  Sex: Female

DRUGS (5)
  1. XENAZINE [Suspect]
     Active Substance: TETRABENAZINE
     Indication: PRODUCT USED FOR UNKNOWN INDICATION
     Dosage: 25 MG TOTAL
     Route: 048
     Dates: start: 20200117, end: 2020
  2. XENAZINE [Suspect]
     Active Substance: TETRABENAZINE
     Indication: MEDICATION ERROR
  3. GUTRON [Suspect]
     Active Substance: MIDODRINE
     Indication: PRODUCT USED FOR UNKNOWN INDICATION
     Dosage: 2.5 MG TOTAL
     Route: 048
     Dates: start: 20200117, end: 2020
  4. GUTRON [Suspect]
     Active Substance: MIDODRINE
     Indication: MEDICATION ERROR
  5. NOVORAPID [Concomitant]
     Active Substance: INSULIN ASPART
     Indication: TYPE 2 DIABETES MELLITUS

REACTIONS (3)
  - Medication error [Recovered/Resolved]
  - Hypertension [Recovered/Resolved]
  - Wrong product administered [Recovered/Resolved]

NARRATIVE: CASE EVENT DATE: 20200117
